FAERS Safety Report 7727562-0 (Version None)
Quarter: 2011Q3

REPORT INFORMATION
  Report Type: 
  Country: None (occurrence: None)
  Receive Date: 20110902
  Receipt Date: 20110822
  Transmission Date: 20111222
  Serious: Yes (Hospitalization)
  Sender: FDA-Public Use
  Company Number: FR-NOVOPROD-334167

PATIENT

DRUGS (6)
  1. AMIODARONE HCL [Concomitant]
     Dosage: ONE DOSE DAILY
     Route: 048
  2. PANTOPRAZOLE [Concomitant]
  3. REPAGLINIDE [Concomitant]
     Indication: TYPE 2 DIABETES MELLITUS
  4. PLAVIX [Concomitant]
     Dosage: 75 MG, QD
     Route: 048
  5. VICTOZA [Suspect]
     Indication: TYPE 2 DIABETES MELLITUS
     Dosage: UNK
     Route: 065
     Dates: start: 20110401, end: 20110507
  6. ALFUZOSIN HCL [Concomitant]

REACTIONS (1)
  - LUNG DISORDER [None]
